FAERS Safety Report 6775562-X (Version None)
Quarter: 2010Q2

REPORT INFORMATION
  Report Type: 
  Country: None (occurrence: None)
  Receive Date: 20100617
  Receipt Date: 20100607
  Transmission Date: 20101027
  Serious: Yes (Hospitalization)
  Sender: FDA-Public Use
  Company Number: US-ELI_LILLY_AND_COMPANY-US201006002639

PATIENT
  Sex: Female

DRUGS (11)
  1. FORTEO [Suspect]
     Indication: OSTEOPOROSIS
     Dosage: 20 UG, DAILY (1/D)
     Dates: start: 20100126
  2. METOPROLOL [Concomitant]
  3. SYNTHROID [Concomitant]
  4. AMITRIPTYLINE [Concomitant]
  5. PERCOCET [Concomitant]
  6. PHENERGAN [Concomitant]
  7. POTASSIUM [Concomitant]
  8. CALTRATE + D [Concomitant]
  9. VITAMIN D [Concomitant]
  10. ALBUTEROL [Concomitant]
  11. ADVAIR DISKUS 100/50 [Concomitant]

REACTIONS (10)
  - BODY HEIGHT DECREASED [None]
  - BONE PAIN [None]
  - DYSPNOEA [None]
  - EATING DISORDER [None]
  - INJECTION SITE PAIN [None]
  - MALAISE [None]
  - PAIN [None]
  - PAIN IN EXTREMITY [None]
  - RIB FRACTURE [None]
  - WEIGHT DECREASED [None]
